FAERS Safety Report 6494675-3 (Version None)
Quarter: 2009Q4

REPORT INFORMATION
  Report Type: 
  Country: None (occurrence: None)
  Receive Date: 20091214
  Receipt Date: 20090331
  Transmission Date: 20100525
  Serious: No
  Sender: FDA-Public Use
  Company Number: US-BRISTOL-MYERS SQUIBB COMPANY-14543417

PATIENT
  Age: 57 Year
  Sex: Female

DRUGS (2)
  1. ABILIFY [Suspect]
     Indication: MAJOR DEPRESSION
     Dosage: STARTED AT LOWER DOSE OF 2MG
     Route: 048
     Dates: start: 20081216
  2. PAXIL [Concomitant]

REACTIONS (1)
  - RESTLESS LEGS SYNDROME [None]
